FAERS Safety Report 9111591 (Version 1)
Quarter: 2013Q1

REPORT INFORMATION
  Report Type: Spontaneous
  Country: US (occurrence: US)
  Receive Date: 20130219
  Receipt Date: 20130219
  Transmission Date: 20140127
  Serious: No
  Sender: FDA-Public Use
  Company Number: US-BRISTOL-MYERS SQUIBB COMPANY-16677809

PATIENT
  Age: 33 Year
  Sex: Male

DRUGS (1)
  1. ORENCIA [Suspect]

REACTIONS (4)
  - Pyrexia [Unknown]
  - Chills [Not Recovered/Not Resolved]
  - Asthenia [Unknown]
  - Epistaxis [Unknown]
